FAERS Safety Report 7577513-7 (Version None)
Quarter: 2011Q2

REPORT INFORMATION
  Report Type: 
  Country: None (occurrence: None)
  Receive Date: 20110628
  Receipt Date: 20110622
  Transmission Date: 20111010
  Serious: Yes (Hospitalization)
  Sender: FDA-Public Use
  Company Number: US-SANOFI-AVENTIS-2011SA040444

PATIENT
  Age: 50 Year
  Sex: Male
  Weight: 76.2 kg

DRUGS (4)
  1. ZOLPIDEM TARTRATE [Suspect]
     Indication: INSOMNIA
     Route: 048
  2. AMBIEN [Suspect]
     Indication: INSOMNIA
     Route: 048
  3. HYDROXYZINE HYDROCHLORIDE [Suspect]
     Indication: ANXIETY
  4. SERTRALINE HYDROCHLORIDE [Suspect]
     Indication: BIPOLAR DISORDER
     Route: 065

REACTIONS (8)
  - LACERATION [None]
  - PERIPHERAL NERVE INJURY [None]
  - HYPOTONIA [None]
  - LOSS OF CONSCIOUSNESS [None]
  - SCAR [None]
  - PERIORBITAL HAEMATOMA [None]
  - BLOOD POTASSIUM DECREASED [None]
  - DRUG INEFFECTIVE [None]
